FAERS Safety Report 21958287 (Version 1)
Quarter: 2023Q1

REPORT INFORMATION
  Report Type: Spontaneous
  Country: US (occurrence: US)
  Receive Date: 20230206
  Receipt Date: 20230206
  Transmission Date: 20230417
  Serious: No
  Sender: FDA-Public Use
  Company Number: US-PFIZER INC-PV202300021401

PATIENT
  Age: 65 Year
  Sex: Female
  Weight: 53.968 kg

DRUGS (11)
  1. AZULFIDINE [Suspect]
     Active Substance: SULFASALAZINE
     Indication: Rheumatoid arthritis
     Dosage: 1000 MG, DAILY
     Route: 048
     Dates: end: 201407
  2. AZULFIDINE [Suspect]
     Active Substance: SULFASALAZINE
     Dosage: 500 MG, DAILY
     Route: 048
     Dates: end: 20150814
  3. AZULFIDINE [Suspect]
     Active Substance: SULFASALAZINE
     Dosage: 2000 MG, DAILY
     Route: 048
     Dates: start: 20150814
  4. AZULFIDINE [Suspect]
     Active Substance: SULFASALAZINE
     Dosage: 3000 MG, DAILY
     Route: 048
  5. AZULFIDINE [Suspect]
     Active Substance: SULFASALAZINE
     Dosage: 700 MG, DAILY
     Route: 048
     Dates: end: 20211018
  6. AZULFIDINE [Suspect]
     Active Substance: SULFASALAZINE
     Dosage: 1500 MG, DAILY
     Route: 048
     Dates: start: 20211018
  7. AZULFIDINE [Suspect]
     Active Substance: SULFASALAZINE
     Dosage: 2000 MG, DAILY
     Route: 048
     Dates: end: 202209
  8. AZULFIDINE [Suspect]
     Active Substance: SULFASALAZINE
     Dosage: 2500 MG, DAILY
     Route: 048
     Dates: start: 202209
  9. PREDNISONE [Concomitant]
     Active Substance: PREDNISONE
     Dosage: 10 MG, DAILY
     Dates: start: 201401
  10. HYDROXYCHLOROQUINE DIPHOSPHATE [Concomitant]
     Active Substance: HYDROXYCHLOROQUINE DIPHOSPHATE
     Dosage: 400 MG, DAILY
  11. FOLIC ACID [Concomitant]
     Active Substance: FOLIC ACID
     Dosage: UNK

REACTIONS (2)
  - Therapeutic product effect incomplete [Unknown]
  - Off label use [Unknown]
